FAERS Safety Report 7068433-5 (Version None)
Quarter: 2010Q4

REPORT INFORMATION
  Report Type: 
  Country: None (occurrence: None)
  Receive Date: 20101028
  Receipt Date: 20101018
  Transmission Date: 20110411
  Serious: Yes (Life-Threatening)
  Sender: FDA-Public Use
  Company Number: B0681401A

PATIENT
  Sex: Female

DRUGS (3)
  1. RYTHMOL [Suspect]
     Route: 048
  2. MABTHERA [Suspect]
     Route: 042
     Dates: start: 20090601, end: 20091223
  3. FLUDARA [Suspect]
     Route: 042
     Dates: start: 20090601, end: 20091001

REACTIONS (1)
  - CARDIOGENIC SHOCK [None]
